FAERS Safety Report 5042052-4 (Version None)
Quarter: 2006Q2

REPORT INFORMATION
  Report Type: 
  Country: None (occurrence: None)
  Receive Date: 20060630
  Receipt Date: 20060627
  Transmission Date: 20061013
  Serious: Yes (Hospitalization)
  Sender: FDA-Public Use
  Company Number: 2006-02604

PATIENT
  Age: 1 Year
  Sex: Female
  Weight: 12 kg

DRUGS (1)
  1. TRELSTAR DEPOT (WITH CLIP'N'JECT) (WATSON LABORATORIES) (TRIPTORELIN P [Suspect]
     Indication: PRECOCIOUS PUBERTY
     Dosage: 3.75 MG MONTHLY INTRAMUSCULAR
     Route: 030
     Dates: start: 20060213, end: 20060416

REACTIONS (3)
  - MENINGITIS ASEPTIC [None]
  - OVERDOSE [None]
  - PYREXIA [None]
